FAERS Safety Report 4586407-0 (Version None)
Quarter: 2005Q1

REPORT INFORMATION
  Report Type: 
  Country: None (occurrence: None)
  Receive Date: 20050125
  Receipt Date: 20040907
  Transmission Date: 20050727
  Serious: No
  Sender: FDA-Public Use
  Company Number: USA040977568

PATIENT
  Age: 60 Year
  Sex: Female

DRUGS (5)
  1. FORTEO [Suspect]
     Indication: OSTEOPOROSIS
     Dosage: 20 UG/1 DAY
     Dates: start: 20040903, end: 30040906
  2. PLAVIX [Concomitant]
  3. PRAVACHOL [Concomitant]
  4. ALTACE [Concomitant]
  5. ALLEGRA [Concomitant]

REACTIONS (3)
  - HEADACHE [None]
  - INCREASED UPPER AIRWAY SECRETION [None]
  - THROAT TIGHTNESS [None]
